FAERS Safety Report 6374742-5 (Version None)
Quarter: 2009Q3

REPORT INFORMATION
  Report Type: 
  Country: None (occurrence: None)
  Receive Date: 20090924
  Receipt Date: 20090915
  Transmission Date: 20100115
  Serious: Yes (Other)
  Sender: FDA-Public Use
  Company Number: PHEH2009US11318

PATIENT
  Sex: Male

DRUGS (1)
  1. EXJADE [Suspect]
     Dosage: 1250 MG, QD
     Route: 048

REACTIONS (5)
  - DEHYDRATION [None]
  - EATING DISORDER [None]
  - FATIGUE [None]
  - FLUID INTAKE REDUCED [None]
  - SOMNOLENCE [None]
